FAERS Safety Report 9461472 (Version 2)
Quarter: 2013Q3

REPORT INFORMATION
  Report Type: Spontaneous
  Country: AU (occurrence: AU)
  Receive Date: 20130816
  Receipt Date: 20130916
  Transmission Date: 20140515
  Serious: Yes (Other)
  Sender: FDA-Public Use
  Company Number: PHHY2013AU087922

PATIENT
  Sex: Female

DRUGS (8)
  1. VOLTAREN [Suspect]
     Indication: PAIN
     Dosage: 2 DF, BID
     Dates: start: 200508
  2. VOLTAREN [Suspect]
     Dosage: 1 DF, DAILY
  3. XALACOM [Concomitant]
     Dosage: UNK AT NIGHT
  4. VITAMIN D [Concomitant]
     Dosage: UNK UKN, UNK
  5. NEXIUM 1-2-3 [Concomitant]
     Dosage: 20 MG, BID
  6. ARIMIDEX [Concomitant]
     Dosage: UNK UKN, UNK
  7. GARLIC [Concomitant]
     Dosage: UNK UKN, UNK
  8. HORSE-RADISH [Concomitant]
     Dosage: UNK UKN, UNK

REACTIONS (3)
  - Hiatus hernia [Unknown]
  - Palpitations [Unknown]
  - Gastrooesophageal reflux disease [Recovering/Resolving]
